FAERS Safety Report 24249776 (Version 1)
Quarter: 2024Q3

REPORT INFORMATION
  Report Type: Spontaneous
  Country: US (occurrence: US)
  Receive Date: 20240826
  Receipt Date: 20240826
  Transmission Date: 20241017
  Serious: No
  Sender: SANOFI AVENTIS
  Company Number: US-SA-SAC20240820000959

PATIENT
  Age: 44 Year
  Sex: Male
  Weight: 68.9 kg

DRUGS (1)
  1. DUPIXENT [Suspect]
     Active Substance: DUPILUMAB
     Indication: Dermatitis atopic
     Dosage: 300MG/2ML QOW
     Route: 058
     Dates: start: 20181205

REACTIONS (1)
  - Weight abnormal [Unknown]
